FAERS Safety Report 9516705 (Version 1)
Quarter: 2013Q1

REPORT INFORMATION
  Report Type: Spontaneous
  Country: US (occurrence: None)
  Receive Date: 20130305
  Receipt Date: 20130305
  Transmission Date: 20140127
  Serious: Yes (Other)
  Sender: FDA-Public Use
  Company Number: 163-21880-12120392

PATIENT
  Sex: Female

DRUGS (6)
  1. REVLIMID [Suspect]
     Indication: PLASMA CELL MYELOMA
     Dosage: 15 MG, 21 IN 21 D, PO
     Dates: start: 20121112
  2. ASPIRIN(ACETYLSALICYLIC ACID)(UNKNOWN) [Concomitant]
  3. CALCIUM 600+D(LEKOVIT CA)(UNKNOWN) [Concomitant]
  4. FISH OIL(FISH OIL)(UNKNOWN) [Concomitant]
  5. TOPROL XL(METOPROLOL SUCCINATE)(UNKNOWN) [Concomitant]
  6. VITAMIN B12(CYANOCOBALAMIN)(UNKNOWN) [Concomitant]

REACTIONS (3)
  - Syncope [None]
  - Fall [None]
  - Rash [None]
